FAERS Safety Report 4294798-3 (Version None)
Quarter: 2004Q1

REPORT INFORMATION
  Report Type: 
  Country: None (occurrence: None)
  Receive Date: 20040216
  Receipt Date: 20021204
  Transmission Date: 20041129
  Serious: Yes (Life-Threatening, Disabling, Other)
  Sender: FDA-Public Use
  Company Number: US-GLAXOSMITHKLINE-A0388962A

PATIENT
  Age: 34 Year
  Sex: Female
  Weight: 60.9 kg

DRUGS (2)
  1. LAMICTAL [Suspect]
     Dosage: 75MG PER DAY
     Route: 048
     Dates: start: 20011101, end: 20011210
  2. PAXIL [Concomitant]
     Dosage: 40MG PER DAY
     Route: 048

REACTIONS (5)
  - DEPRESSION [None]
  - HYPERSENSITIVITY [None]
  - SKIN HYPERPIGMENTATION [None]
  - STEVENS-JOHNSON SYNDROME [None]
  - URTICARIA [None]
